FAERS Safety Report 17341806 (Version 1)
Quarter: 2020Q1

REPORT INFORMATION
  Report Type: Spontaneous
  Country: US (occurrence: US)
  Receive Date: 20200129
  Receipt Date: 20200129
  Transmission Date: 20200409
  Serious: No
  Sender: FDA-Public Use
  Company Number: US-ALLERGAN-1917627US

PATIENT
  Age: 40 Year
  Sex: Female

DRUGS (2)
  1. BOTOX COSMETIC [Suspect]
     Active Substance: ONABOTULINUMTOXINA
     Indication: SKIN WRINKLING
  2. BOTOX COSMETIC [Suspect]
     Active Substance: ONABOTULINUMTOXINA
     Indication: SKIN WRINKLING
     Dosage: 32 UNITS, SINGLE
     Route: 030
     Dates: start: 20190408, end: 20190408

REACTIONS (10)
  - Dyspnoea [Recovered/Resolved]
  - Hyperaesthesia [Not Recovered/Not Resolved]
  - Pharyngeal swelling [Recovered/Resolved]
  - Swelling face [Recovered/Resolved]
  - Dysphagia [Recovered/Resolved]
  - Ear discomfort [Recovered/Resolved]
  - Periorbital oedema [Recovered/Resolved]
  - Hypersensitivity [Recovered/Resolved]
  - Periorbital swelling [Not Recovered/Not Resolved]
  - Rash [Recovered/Resolved]

NARRATIVE: CASE EVENT DATE: 20190420
